FAERS Safety Report 7067615-6 (Version None)
Quarter: 2010Q4

REPORT INFORMATION
  Report Type: 
  Country: None (occurrence: None)
  Receive Date: 20101019
  Receipt Date: 20101006
  Transmission Date: 20110411
  Serious: Yes (Death, Hospitalization)
  Sender: FDA-Public Use
  Company Number: KV201000157

PATIENT
  Age: 45 Year
  Sex: Female
  Weight: 104.3 kg

DRUGS (10)
  1. MORPHINE SULFATE [Suspect]
     Indication: BACK PAIN
     Dosage: 30 MG, Q4-6 HRS ,ORAL
     Route: 048
     Dates: start: 20070628, end: 20080507
  2. ACTIQ [Suspect]
     Indication: BACK PAIN
     Dosage: 600 MCG QD PRN, ORAL
     Route: 048
  3. MEPROBAMATE [Concomitant]
  4. CARISOPRODOL [Concomitant]
  5. AMITRIPTYLINE HYDROCHLORIDE [Concomitant]
  6. BACLOFEN [Concomitant]
  7. LUNESTA [Concomitant]
  8. TOPAMAX [Concomitant]
  9. TEMAZEPAM [Concomitant]
  10. AMITRIPTYLINE-CHLORDIAZEPOXIDE (AMITRIPTYLINE-CHLORDIAZEPOXIDE) [Concomitant]

REACTIONS (10)
  - ACCIDENTAL DEATH [None]
  - ARTHRALGIA [None]
  - CARDIOMEGALY [None]
  - CONSTIPATION [None]
  - DRUG TOXICITY [None]
  - LABORATORY TEST ABNORMAL [None]
  - MENTAL STATUS CHANGES [None]
  - MOUTH HAEMORRHAGE [None]
  - OVERDOSE [None]
  - PULMONARY OEDEMA [None]
